FAERS Safety Report 9640338 (Version 1)
Quarter: 2013Q4

REPORT INFORMATION
  Report Type: Spontaneous
  Country: FR (occurrence: FR)
  Receive Date: 20131023
  Receipt Date: 20131023
  Transmission Date: 20140711
  Serious: Yes (Other)
  Sender: FDA-Public Use
  Company Number: FR-ASTRAZENECA-2013SE76096

PATIENT
  Age: 25175 Day
  Sex: Female

DRUGS (3)
  1. NAROPEINE [Suspect]
     Indication: ENTHESOPATHY
     Dosage: 7.5 MG/ML
     Route: 052
     Dates: start: 20130830, end: 20130830
  2. HYDROCORTANCYL [Suspect]
     Indication: ENTHESOPATHY
     Dosage: 2.5 PERCENT
     Route: 052
     Dates: start: 20130830, end: 20130830
  3. SUBSTITUTIVE HORMONAL TREATMENT [Concomitant]
     Dates: end: 2002

REACTIONS (4)
  - Feeling hot [Recovered/Resolved]
  - Malaise [Recovered/Resolved]
  - Hypertension [Recovered/Resolved]
  - Tachycardia [Recovered/Resolved]
